FAERS Safety Report 13725692 (Version 1)
Quarter: 2017Q3

REPORT INFORMATION
  Report Type: Spontaneous
  Country: US (occurrence: US)
  Receive Date: 20170706
  Receipt Date: 20170706
  Transmission Date: 20171127
  Serious: Yes (Hospitalization)
  Sender: FDA-Public Use
  Company Number: US-PFIZER INC-2017289870

PATIENT
  Age: 69 Year
  Sex: Female
  Weight: 61 kg

DRUGS (8)
  1. DIGOXEN [Concomitant]
     Active Substance: DIGOXIN
     Indication: HEART RATE INCREASED
     Dosage: 0.125 MG, 1X/DAY
     Dates: start: 201606
  2. ALBUTEROL /00139501/ [Concomitant]
     Active Substance: ALBUTEROL
     Indication: DYSPNOEA
     Dosage: SOMETIMES ONCE EVERY 2-4 WEEKS
  3. COUMADIN [Concomitant]
     Active Substance: WARFARIN SODIUM
     Indication: ATRIAL FIBRILLATION
     Dosage: 2 MG, ALTERNATING BETWEEN 5 DAYS A WEEK 2MG AND THEN 2 DAYS THAT 2.5MG ONCE A DAY
     Dates: start: 201603, end: 201606
  4. TIKOSYN [Suspect]
     Active Substance: DOFETILIDE
     Indication: ATRIAL FIBRILLATION
     Dosage: 0.5 MG, 2X/DAY
     Dates: start: 2016
  5. COUMADIN [Concomitant]
     Active Substance: WARFARIN SODIUM
     Dosage: 2.5 MG, ALTERNATING BETWEEN 5 DAYS A WEEK 2MG AND THEN 2 DAYS THAT 2.5MG ONCE A DAY
     Dates: start: 201603, end: 201606
  6. ELIQUIS [Concomitant]
     Active Substance: APIXABAN
     Dosage: UNK
  7. XANAX [Concomitant]
     Active Substance: ALPRAZOLAM
     Indication: PANIC DISORDER
  8. XANAX [Concomitant]
     Active Substance: ALPRAZOLAM
     Indication: ANXIETY
     Dosage: 0.5 MG, UP TO THREE TIMES DAY
     Dates: start: 2009

REACTIONS (9)
  - Drug ineffective [Recovering/Resolving]
  - Palpitations [Unknown]
  - Oedema [Unknown]
  - Eye movement disorder [Unknown]
  - Chest pain [Unknown]
  - Dyspnoea [Unknown]
  - Dyspepsia [Unknown]
  - Dizziness [Unknown]
  - Memory impairment [Unknown]
